FAERS Safety Report 4386648-1 (Version None)
Quarter: 2004Q2

REPORT INFORMATION
  Report Type: 
  Country: None (occurrence: None)
  Receive Date: 20040623
  Receipt Date: 20040609
  Transmission Date: 20050107
  Serious: Yes (Other)
  Sender: FDA-Public Use
  Company Number: 10056168-NA01-1

PATIENT
  Age: 61 Year
  Sex: Male

DRUGS (3)
  1. TRAVASOL 8.5% W/O ELECTROLYTES [Suspect]
     Indication: THROAT CANCER
     Dates: start: 20040607, end: 20040609
  2. DILANTIN INJ [Concomitant]
  3. LORAZEPAM IV AND INHALATION THERAPY (MEDICATIONS USED UNKNOWN) [Concomitant]

REACTIONS (3)
  - ERYTHEMA [None]
  - INFUSION RELATED REACTION [None]
  - PRURITUS [None]
